FAERS Safety Report 5252650-0 (Version None)
Quarter: 2007Q1

REPORT INFORMATION
  Report Type: 
  Country: None (occurrence: None)
  Receive Date: 20070301
  Receipt Date: 20061102
  Transmission Date: 20070707
  Serious: No
  Sender: FDA-Public Use
  Company Number: US-GLAXOSMITHKLINE-A0626036A

PATIENT
  Age: 68 Year
  Sex: Female

DRUGS (4)
  1. LAMICTAL [Suspect]
     Indication: BIPOLAR II DISORDER
     Dosage: 25MG PER DAY
     Route: 048
     Dates: start: 20061101
  2. NSAIDS [Concomitant]
  3. DARVOCET [Concomitant]
  4. LUNESTA [Concomitant]

REACTIONS (1)
  - NAUSEA [None]
